FAERS Safety Report 6256126-3 (Version None)
Quarter: 2009Q3

REPORT INFORMATION
  Report Type: 
  Country: None (occurrence: None)
  Receive Date: 20090706
  Receipt Date: 20090623
  Transmission Date: 20100115
  Serious: Yes (Hospitalization, Other)
  Sender: FDA-Public Use
  Company Number: PHHY2009DE17936

PATIENT
  Sex: Male
  Weight: 86 kg

DRUGS (6)
  1. LEPONEX [Suspect]
     Indication: SCHIZOPHRENIA
     Dosage: 450 MG DAILY
     Dates: start: 20080610
  2. LEPONEX [Suspect]
     Dosage: 350 MG/DAY
     Route: 048
  3. LEPONEX [Suspect]
     Dosage: 50 MG, BID
     Route: 048
  4. ERGENYL [Concomitant]
     Dosage: 800 MG, BID
     Route: 048
     Dates: start: 20080601
  5. BELOC ZOK [Concomitant]
     Dosage: 47.5 MG, QD
     Route: 048
  6. DIPIPERON [Concomitant]
     Dosage: 80 MG/DAY
     Route: 048
     Dates: start: 20080601

REACTIONS (6)
  - ASTHENIA [None]
  - CARDIAC DISORDER [None]
  - CARDIAC FAILURE [None]
  - ELECTROCARDIOGRAM T WAVE INVERSION [None]
  - EXERCISE TOLERANCE DECREASED [None]
  - HYPERHIDROSIS [None]
